FAERS Safety Report 5827978-3 (Version None)
Quarter: 2008Q3

REPORT INFORMATION
  Report Type: 
  Country: None (occurrence: None)
  Receive Date: 20080730
  Receipt Date: 20080722
  Transmission Date: 20090109
  Serious: Yes (Other)
  Sender: FDA-Public Use
  Company Number: FR-PFIZER INC-2008062277

PATIENT
  Age: 77 Year
  Sex: Male

DRUGS (1)
  1. NEURONTIN [Suspect]
     Indication: EPILEPSY
     Dates: start: 20050101, end: 20080701

REACTIONS (3)
  - ANURIA [None]
  - RENAL FAILURE ACUTE [None]
  - RENAL TUBULAR NECROSIS [None]
